FAERS Safety Report 8244314 (Version 5)
Quarter: 2013Q3

REPORT INFORMATION
  Report Type: Report from Study
  Country: MY (occurrence: MY)
  Receive Date: 20111115
  Receipt Date: 20130911
  Transmission Date: 20140515
  Serious: Yes (Hospitalization)
  Sender: FDA-Public Use
  Company Number: MY-BRISTOL-MYERS SQUIBB COMPANY-16226995

PATIENT
  Age: 30 Year
  Sex: Male

DRUGS (3)
  1. ABILIFY TABS [Suspect]
     Indication: SCHIZOPHRENIA
     Route: 048
     Dates: start: 20111024, end: 20111101
  2. RISPERIDONE [Concomitant]
     Dates: start: 20060103, end: 20111101
  3. BENZHEXOL [Concomitant]
     Dates: start: 20060103, end: 20111101

REACTIONS (1)
  - Schizophrenia [Recovered/Resolved]
